FAERS Safety Report 16931765 (Version 1)
Quarter: 2019Q4

REPORT INFORMATION
  Report Type: Spontaneous
  Country: US (occurrence: US)
  Receive Date: 20191017
  Receipt Date: 20191017
  Transmission Date: 20200122
  Serious: No
  Sender: FDA-Public Use
  Company Number: US-009507513-1910USA005329

PATIENT
  Age: 23 Year
  Sex: Female
  Weight: 62.04 kg

DRUGS (1)
  1. NEXPLANON [Suspect]
     Active Substance: ETONOGESTREL
     Indication: CONTRACEPTION
     Dosage: THE IMPLANT
     Route: 059
     Dates: start: 20180926, end: 20191002

REACTIONS (9)
  - Headache [Recovering/Resolving]
  - Weight increased [Recovering/Resolving]
  - Device kink [Recovered/Resolved]
  - Device breakage [Recovered/Resolved]
  - Vomiting [Recovering/Resolving]
  - Mood swings [Recovering/Resolving]
  - Complication of device removal [Recovered/Resolved]
  - Limb discomfort [Recovering/Resolving]
  - Nausea [Recovering/Resolving]

NARRATIVE: CASE EVENT DATE: 201909
